FAERS Safety Report 7075718-5 (Version None)
Quarter: 2010Q4

REPORT INFORMATION
  Report Type: 
  Country: None (occurrence: None)
  Receive Date: 20101101
  Receipt Date: 20101019
  Transmission Date: 20110411
  Serious: Yes (Hospitalization)
  Sender: FDA-Public Use
  Company Number: IT-BIOGENIDEC-2010BI020794

PATIENT
  Age: 48 Year
  Sex: Female

DRUGS (4)
  1. TYSABRI [Suspect]
     Indication: RELAPSING-REMITTING MULTIPLE SCLEROSIS
     Route: 042
     Dates: start: 20100505, end: 20100505
  2. TYSABRI [Suspect]
     Route: 042
     Dates: end: 20100823
  3. PAROXETINE HCL [Concomitant]
     Dates: start: 20100301
  4. GABAPENTIN [Concomitant]
     Dates: start: 20100301

REACTIONS (3)
  - HEMIPARESIS [None]
  - PARTIAL SEIZURES [None]
  - PROGRESSIVE MULTIFOCAL LEUKOENCEPHALOPATHY [None]
